FAERS Safety Report 5010863-7 (Version None)
Quarter: 2006Q2

REPORT INFORMATION
  Report Type: 
  Country: None (occurrence: None)
  Receive Date: 20060525
  Receipt Date: 20060516
  Transmission Date: 20061013
  Serious: Yes (Death)
  Sender: FDA-Public Use
  Company Number: FR-GLAXOSMITHKLINE-B0424400A

PATIENT
  Age: 48 Year
  Sex: Female

DRUGS (8)
  1. AVANDAMET [Suspect]
     Indication: DIABETES MELLITUS NON-INSULIN-DEPENDENT
     Route: 048
  2. VENTOLIN [Concomitant]
     Route: 055
  3. STILNOX [Concomitant]
     Route: 048
  4. URBANYL [Concomitant]
     Route: 048
  5. ALDACTONE [Concomitant]
     Route: 048
  6. LAROXYL [Concomitant]
     Route: 048
  7. RIVOTRIL [Concomitant]
     Route: 048
  8. THERALENE [Concomitant]
     Route: 048

REACTIONS (5)
  - CARDIAC ARREST [None]
  - DEPRESSION [None]
  - DYSPNOEA [None]
  - FALL [None]
  - JOINT SPRAIN [None]
